FAERS Safety Report 17873265 (Version 1)
Quarter: 2020Q2

REPORT INFORMATION
  Report Type: Spontaneous
  Country: US (occurrence: US)
  Receive Date: 20200608
  Receipt Date: 20200608
  Transmission Date: 20200714
  Serious: Yes (Other)
  Sender: FDA-Public Use
  Company Number: US-BAXTER-2020BAX011155

PATIENT
  Age: 4 Year
  Sex: Male

DRUGS (5)
  1. SEVOFLURANE, USP [Suspect]
     Active Substance: SEVOFLURANE
     Indication: MAINTENANCE OF ANAESTHESIA
  2. OXYGEN. [Concomitant]
     Active Substance: OXYGEN
     Indication: MEDICATION DILUTION
     Dosage: 2% SEVOFLURANE DELIVERED WITH A 50/50 RATIO OF OXYGEN AND AIR
     Route: 055
  3. SEVOFLURANE, USP [Suspect]
     Active Substance: SEVOFLURANE
     Indication: INDUCTION OF ANAESTHESIA
     Dosage: 2% SEVOFLURANE DELIVERED WITH A 50/50 RATIO OF OXYGEN AND AIR
     Route: 055
  4. FENTANYL. [Concomitant]
     Active Substance: FENTANYL
     Indication: PAIN PROPHYLAXIS
     Route: 065
  5. ONDANSETRON [Concomitant]
     Active Substance: ONDANSETRON
     Indication: PROPHYLAXIS OF NAUSEA AND VOMITING
     Route: 065

REACTIONS (1)
  - Anaesthetic complication neurological [Recovering/Resolving]
